FAERS Safety Report 13101605 (Version 3)
Quarter: 2017Q1

REPORT INFORMATION
  Report Type: Spontaneous
  Country: US (occurrence: US)
  Receive Date: 20170110
  Receipt Date: 20170220
  Transmission Date: 20170428
  Serious: No
  Sender: FDA-Public Use
  Company Number: US-PFIZER INC-2017010172

PATIENT
  Age: 71 Year
  Sex: Female
  Weight: 67 kg

DRUGS (3)
  1. SYNTHROID [Concomitant]
     Active Substance: LEVOTHYROXINE SODIUM
     Indication: THYROID DISORDER
     Dosage: 75 MG ONCE A DAY IN THE MORNING
  2. EXEMESTANE. [Suspect]
     Active Substance: EXEMESTANE
     Indication: BREAST CANCER
     Dosage: 25 MG, 1X/DAY
     Route: 048
     Dates: start: 201610
  3. DELSYM [Interacting]
     Active Substance: DEXTROMETHORPHAN
     Indication: COUGH
     Dosage: 10 MG, SINGLE (ONLY ONE DOSE)
     Dates: start: 20170108, end: 20170108

REACTIONS (7)
  - Nausea [Recovered/Resolved]
  - Drug interaction [Recovered/Resolved]
  - Amnesia [Not Recovered/Not Resolved]
  - Diarrhoea [Recovered/Resolved]
  - Malaise [Recovered/Resolved]
  - Alopecia [Not Recovered/Not Resolved]
  - Muscle spasms [Recovered/Resolved]

NARRATIVE: CASE EVENT DATE: 20170108
